FAERS Safety Report 19427662 (Version 1)
Quarter: 2021Q2

REPORT INFORMATION
  Report Type: Spontaneous
  Country: US (occurrence: US)
  Receive Date: 20210616
  Receipt Date: 20210616
  Transmission Date: 20210717
  Serious: No
  Sender: FDA-Public Use
  Company Number: US-ROCHE-2683821

PATIENT
  Age: 53 Year
  Sex: Female
  Weight: 96 kg

DRUGS (4)
  1. LEVOPHED [Concomitant]
     Active Substance: NOREPINEPHRINE BITARTRATE
  2. ACTEMRA [Suspect]
     Active Substance: TOCILIZUMAB
     Indication: COVID-19
     Dosage: INTERVAL: 1 DAYS
     Route: 042
     Dates: start: 20200919
  3. DEXAMETHASONE. [Concomitant]
     Active Substance: DEXAMETHASONE
  4. REMDESIVIR. [Concomitant]
     Active Substance: REMDESIVIR
     Dosage: 200 MG ONCE , THEN 100 MG EVERY 24 HOURS

REACTIONS (3)
  - Intentional product use issue [Unknown]
  - Off label use [Unknown]
  - No adverse event [Unknown]

NARRATIVE: CASE EVENT DATE: 20200919
